FAERS Safety Report 4585634-6 (Version None)
Quarter: 2005Q1

REPORT INFORMATION
  Report Type: 
  Country: None (occurrence: None)
  Receive Date: 20050217
  Receipt Date: 20050211
  Transmission Date: 20050727
  Serious: Yes (Life-Threatening, Other)
  Sender: FDA-Public Use
  Company Number: PHFR2005GB00859

PATIENT
  Age: 93 Year
  Sex: Female

DRUGS (9)
  1. RAMIPRIL (NGX) [Suspect]
     Dosage: 5 MG, BID
     Route: 048
     Dates: start: 20030415, end: 20050126
  2. MST CONTINUS ^NAPP^ [Suspect]
     Indication: PAIN
     Dosage: 25MG MANE/15 MG NOCTE
     Route: 048
     Dates: end: 20050127
  3. AMITRIPTYLINE [Concomitant]
     Dosage: 20MG/NOCTE
     Route: 048
  4. CO-DANTHRUSATE [Concomitant]
     Dosage: 1 TABLET NOCTE
     Route: 048
  5. ASPIRIN [Concomitant]
     Indication: MYOCARDIAL ISCHAEMIA
     Dosage: 75MG/MANE
     Route: 048
  6. ALENDRONATE SODIUM [Concomitant]
     Indication: OSTEOPOROSIS
     Dosage: 70MG/WEEKLY
     Route: 048
  7. FRUSEMIDE [Concomitant]
     Indication: MYOCARDIAL ISCHAEMIA
     Dosage: 40MG/MANE
     Route: 048
     Dates: end: 20050126
  8. DICLOFENAC [Suspect]
     Indication: PAIN
     Dosage: 50 MG, TID
     Route: 048
     Dates: start: 20050121, end: 20050126
  9. OMEPRAZOLE [Concomitant]
     Dosage: 20MG MANE
     Dates: start: 20050121, end: 20050126

REACTIONS (5)
  - BLOOD CREATININE INCREASED [None]
  - CONFUSIONAL STATE [None]
  - FALL [None]
  - RENAL FAILURE ACUTE [None]
  - THERAPEUTIC AGENT TOXICITY [None]
